FAERS Safety Report 18753938 (Version 2)
Quarter: 2022Q2

REPORT INFORMATION
  Report Type: Other
  Country: CA (occurrence: CA)
  Receive Date: 20210119
  Receipt Date: 20220502
  Transmission Date: 20220721
  Serious: Yes (Hospitalization, Other)
  Sender: FDA-Public Use
  Company Number: CA-CELLTRION INC.-2021CA000221

PATIENT

DRUGS (27)
  1. RITUXIMAB [Suspect]
     Active Substance: RITUXIMAB
     Indication: Anti-neutrophil cytoplasmic antibody positive vasculitis
     Dosage: UNK
     Route: 042
  2. RITUXIMAB [Suspect]
     Active Substance: RITUXIMAB
     Dosage: 773.0 MILLIGRAM, 1 EVERY 4 MONTHS 9DOSAGE FORM: SOLUTION FOR INFUSION)
     Route: 042
  3. ACETAMINOPHEN [Concomitant]
     Active Substance: ACETAMINOPHEN
     Dosage: 500.0 MILLIGRAM
     Route: 048
  4. ACETAMINOPHEN [Concomitant]
     Active Substance: ACETAMINOPHEN
     Dosage: 650 MILLIGRAM
     Route: 048
  5. ASPIRIN [Concomitant]
     Active Substance: ASPIRIN
     Dosage: 81.0 MILLIGRAM
     Route: 048
  6. ALBUMIN (HUMAN) [Concomitant]
     Active Substance: ALBUMIN HUMAN
     Indication: Hypotension
     Route: 065
  7. ALTEPLASE [Concomitant]
     Active Substance: ALTEPLASE
     Dosage: 2.0 MILLIGRAM
     Route: 065
  8. BENADRYL [Concomitant]
     Active Substance: DIPHENHYDRAMINE HYDROCHLORIDE
     Dosage: 50.0 MILLIGRAM
     Route: 048
  9. BISOPROLOL FUMARATE [Concomitant]
     Active Substance: BISOPROLOL FUMARATE
     Dosage: 2.5 MILLIGRAM
     Route: 048
  10. CALCIUM CARBONATE [Concomitant]
     Active Substance: CALCIUM CARBONATE
     Route: 048
  11. DOCUSATE SODIUM [Concomitant]
     Active Substance: DOCUSATE SODIUM
     Dosage: 100.0 MILLIGRAM
     Route: 048
  12. EPOETIN ALFA [Concomitant]
     Active Substance: ERYTHROPOIETIN
     Route: 058
  13. HEPARIN SODIUM [Concomitant]
     Active Substance: HEPARIN SODIUM
     Route: 065
  14. IPRATROPIUM BROMIDE [Concomitant]
     Active Substance: IPRATROPIUM BROMIDE
     Route: 065
  15. LACTULOSE [Concomitant]
     Active Substance: LACTULOSE
     Dosage: 30.0 ML
     Route: 048
  16. LOPERAMIDE [Concomitant]
     Active Substance: LOPERAMIDE
     Route: 048
  17. LOVENOX [Concomitant]
     Active Substance: ENOXAPARIN SODIUM
     Dosage: 30.0 MICROGRAM
     Route: 042
  18. METHYLPREDNISOLONE SODIUM SUCCINATE [Concomitant]
     Active Substance: METHYLPREDNISOLONE SODIUM SUCCINATE
     Route: 042
  19. MIDODRINE HYDROCHLORIDE [Concomitant]
     Active Substance: MIDODRINE HYDROCHLORIDE
     Dosage: 2.5 MILLIGRAM
     Route: 048
  20. MOXIFLOXACIN [Concomitant]
     Active Substance: MOXIFLOXACIN
     Indication: Chronic obstructive pulmonary disease
     Dosage: 400.0 MILLIGRAM
     Route: 048
  21. PREDNISONE [Concomitant]
     Active Substance: PREDNISONE
     Dosage: 10.0 MILLIGRAM
     Route: 048
  22. PSYLLIUM HUSK [Concomitant]
     Active Substance: PSYLLIUM HUSK
     Route: 048
  23. ROSUVASTATIN [Concomitant]
     Active Substance: ROSUVASTATIN
     Indication: Blood cholesterol
     Dosage: 20.0 MILLIGRAM
     Route: 065
  24. ALBUTEROL [Concomitant]
     Active Substance: ALBUTEROL
  25. SODIUM CITRATE [Concomitant]
     Active Substance: SODIUM CITRATE
  26. SODIUM FERRIC GLUCONATE COMPLEX [Concomitant]
     Active Substance: SODIUM FERRIC GLUCONATE COMPLEX
     Dosage: 125.0 MILLIGRAM
     Route: 042
  27. SPIRIVA [Concomitant]
     Active Substance: TIOTROPIUM BROMIDE MONOHYDRATE
     Route: 065

REACTIONS (16)
  - Accessory muscle [Unknown]
  - Blood creatinine increased [Unknown]
  - Chronic obstructive pulmonary disease [Unknown]
  - Haemoptysis [Unknown]
  - Oxygen saturation decreased [Unknown]
  - Pleural effusion [Unknown]
  - Pulmonary oedema [Unknown]
  - Rales [Unknown]
  - Systemic lupus erythematosus [Unknown]
  - Cough [Unknown]
  - Dyspnoea [Unknown]
  - Heart rate increased [Unknown]
  - Hypertension [Unknown]
  - Pneumonia [Unknown]
  - Pyrexia [Unknown]
  - Cardiac failure congestive [Unknown]
